FAERS Safety Report 17805587 (Version 1)
Quarter: 2020Q2

REPORT INFORMATION
  Report Type: Spontaneous
  Country: MY (occurrence: MY)
  Receive Date: 20200519
  Receipt Date: 20200519
  Transmission Date: 20200714
  Serious: Yes (Other)
  Sender: FDA-Public Use
  Company Number: MY-FRESENIUS KABI-FK202004865

PATIENT
  Age: 29 Year
  Sex: Female

DRUGS (1)
  1. ETOPOSIDE INJECTION, USP [Suspect]
     Active Substance: ETOPOSIDE
     Indication: HODGKIN^S DISEASE
     Route: 065

REACTIONS (6)
  - Restlessness [Recovered/Resolved]
  - Musculoskeletal stiffness [Recovered/Resolved]
  - Dyspnoea [Recovered/Resolved]
  - Wheezing [Recovered/Resolved]
  - Seizure [Recovered/Resolved]
  - Stridor [Recovered/Resolved]
